FAERS Safety Report 15485766 (Version 1)
Quarter: 2018Q4

REPORT INFORMATION
  Report Type: Report from Study
  Country: CA (occurrence: CA)
  Receive Date: 20181010
  Receipt Date: 20181010
  Transmission Date: 20190205
  Serious: Yes (Other)
  Sender: FDA-Public Use
  Company Number: CA-BAXTER-2018BAX024828

PATIENT
  Age: 80 Year
  Sex: Female

DRUGS (2)
  1. FUROSEMIDE INJECTION USP [Suspect]
     Active Substance: FUROSEMIDE
     Indication: PRODUCT USED FOR UNKNOWN INDICATION
     Route: 065
  2. LOSARTAN. [Suspect]
     Active Substance: LOSARTAN
     Indication: PRODUCT USED FOR UNKNOWN INDICATION
     Route: 065

REACTIONS (4)
  - Syncope [Unknown]
  - Circulatory collapse [Unknown]
  - Hypotension [Unknown]
  - Acute kidney injury [Unknown]
